FAERS Safety Report 12904554 (Version 2)
Quarter: 2016Q4

REPORT INFORMATION
  Report Type: Spontaneous
  Country: JP (occurrence: JP)
  Receive Date: 20161102
  Receipt Date: 20161121
  Transmission Date: 20170207
  Serious: Yes (Hospitalization)
  Sender: FDA-Public Use
  Company Number: JP-NOVOPROD-516370

PATIENT
  Age: 77 Year
  Sex: Male
  Weight: 52.1 kg

DRUGS (20)
  1. VICTOZA [Suspect]
     Active Substance: LIRAGLUTIDE
     Dosage: 0.3 MG, QD
     Route: 065
     Dates: start: 20150929
  2. VICTOZA [Suspect]
     Active Substance: LIRAGLUTIDE
     Dosage: 0.9 MG, QD
     Route: 065
     Dates: start: 20160202, end: 20161003
  3. AMLODIPINE [Concomitant]
     Active Substance: AMLODIPINE BESYLATE
     Indication: HYPERTENSION
     Dosage: 2.5 - 5 MG/DAY
     Route: 048
     Dates: start: 20091124
  4. DIAZEPAM. [Concomitant]
     Active Substance: DIAZEPAM
     Indication: DEPRESSION
     Dosage: 9 MG
     Route: 048
     Dates: start: 20090912, end: 20161003
  5. AMLODIPINE [Concomitant]
     Active Substance: AMLODIPINE BESYLATE
     Dosage: UNK
     Route: 048
     Dates: end: 20161003
  6. LOSARTAN POTASSIUM. [Concomitant]
     Active Substance: LOSARTAN POTASSIUM
     Dosage: UNK
     Route: 048
     Dates: end: 20161003
  7. SENNOSIDE                          /00571901/ [Concomitant]
     Active Substance: SENNOSIDES A AND B
     Dosage: UNK
     Route: 048
     Dates: end: 20161003
  8. VICTOZA [Suspect]
     Active Substance: LIRAGLUTIDE
     Dosage: 0.6 MG, QD
     Route: 065
     Dates: start: 20151222
  9. AMOXAPINE. [Concomitant]
     Active Substance: AMOXAPINE
     Indication: DEPRESSION
     Dosage: 40 MG
     Route: 048
     Dates: end: 20161003
  10. PREGABALIN. [Concomitant]
     Active Substance: PREGABALIN
     Dosage: UNK
     Route: 048
     Dates: end: 20161003
  11. SENNOSIDE                          /00571901/ [Concomitant]
     Active Substance: SENNOSIDES A AND B
     Indication: CONSTIPATION
     Dosage: 48 MG
     Route: 048
  12. PICOSULFATE NA [Concomitant]
     Dosage: UNK AS-NEEDED USED
     Route: 048
     Dates: end: 20161003
  13. TRESIBA CHU [Concomitant]
     Active Substance: INSULIN DEGLUDEC
     Indication: TYPE 2 DIABETES MELLITUS
     Dosage: 18-26 U/DAY
     Route: 058
     Dates: start: 20160304
  14. VICTOZA [Suspect]
     Active Substance: LIRAGLUTIDE
     Indication: TYPE 2 DIABETES MELLITUS
     Dosage: 0.03 MG, QD
     Route: 058
     Dates: start: 20150415
  15. VICTOZA [Suspect]
     Active Substance: LIRAGLUTIDE
     Dosage: 0.6 MG, QD
     Route: 065
     Dates: start: 20150526
  16. PICOSULFATE NA [Concomitant]
     Indication: CONSTIPATION
     Dosage: UNK AS-NEEDED USED
     Route: 048
     Dates: start: 20081014
  17. LANSOPRAZOLE. [Concomitant]
     Active Substance: LANSOPRAZOLE
     Indication: PROPHYLAXIS AGAINST GASTROINTESTINAL ULCER
     Dosage: 15 MG
     Route: 048
     Dates: start: 20090317
  18. LOSARTAN POTASSIUM. [Concomitant]
     Active Substance: LOSARTAN POTASSIUM
     Indication: HYPERTENSION
     Dosage: 50 MG
     Route: 048
     Dates: start: 20110524
  19. PREGABALIN. [Concomitant]
     Active Substance: PREGABALIN
     Indication: LUMBAR SPINAL STENOSIS
     Dosage: 75 MG
     Route: 048
     Dates: start: 20121024
  20. CILOSTAZOL. [Concomitant]
     Active Substance: CILOSTAZOL
     Indication: CEREBRAL INFARCTION
     Dosage: 200 MG
     Route: 048

REACTIONS (3)
  - Gastroenteritis [Unknown]
  - Pneumoperitoneum [Recovered/Resolved]
  - Pneumatosis intestinalis [Recovered/Resolved]

NARRATIVE: CASE EVENT DATE: 20150830
